FAERS Safety Report 8974198 (Version 2)
Quarter: 2013Q1

REPORT INFORMATION
  Report Type: Spontaneous
  Country: US (occurrence: None)
  Receive Date: 20121214
  Receipt Date: 20130211
  Transmission Date: 20140127
  Serious: Yes (Hospitalization)
  Sender: FDA-Public Use
  Company Number: ADR-2012-02222

PATIENT
  Sex: Female

DRUGS (4)
  1. BACLOFEN INTRATHECAL [Suspect]
     Indication: PARKINSON^S DISEASE
  2. DILAUDID [Concomitant]
  3. HYDROMORPHONE [Concomitant]
  4. INTRATHECAL [Concomitant]

REACTIONS (2)
  - Depression [None]
  - Paranoia [None]
